FAERS Safety Report 6410332-3 (Version None)
Quarter: 2009Q4

REPORT INFORMATION
  Report Type: 
  Country: None (occurrence: None)
  Receive Date: 20091022
  Receipt Date: 20091016
  Transmission Date: 20100525
  Serious: Yes (Death, Hospitalization, Other)
  Sender: FDA-Public Use
  Company Number: US-JNJFOC-20090304034

PATIENT
  Age: 42 Year
  Sex: Female

DRUGS (30)
  1. DARUNAVIR [Suspect]
     Route: 048
  2. DARUNAVIR [Suspect]
     Indication: HIV INFECTION
     Route: 048
  3. ETRAVIRINE [Suspect]
     Route: 048
  4. ETRAVIRINE [Suspect]
     Indication: HIV INFECTION
     Route: 048
  5. RALTEGRAVIR [Suspect]
     Route: 048
  6. RALTEGRAVIR [Suspect]
     Indication: HIV INFECTION
     Route: 048
  7. RITONAVIR [Suspect]
     Route: 048
  8. RITONAVIR [Suspect]
     Indication: HIV INFECTION
     Route: 048
  9. ZIDOVUDINE [Suspect]
     Route: 065
  10. ZIDOVUDINE [Suspect]
     Indication: HIV INFECTION
     Route: 065
  11. TRUVADA [Suspect]
     Route: 065
  12. TRUVADA [Suspect]
     Indication: HIV INFECTION
     Route: 065
  13. BACTRIM [Suspect]
     Indication: PNEUMOCYSTIS JIROVECI PNEUMONIA
  14. AMPHOTERICIN B [Suspect]
     Indication: DRUG USE FOR UNKNOWN INDICATION
     Route: 065
  15. AZITHROMYCIN [Concomitant]
  16. LOMOTIL [Concomitant]
  17. IBUPROFEN [Concomitant]
  18. PANTOPRAZOLE SODIUM [Concomitant]
     Route: 065
  19. PENTAMIDINE ISETHIONATE [Concomitant]
     Indication: PNEUMOCYSTIS JIROVECI PNEUMONIA
     Route: 055
  20. DELSYM [Concomitant]
     Indication: COUGH
     Route: 065
  21. DIFLUCAN [Concomitant]
     Indication: ORAL CANDIDIASIS
     Route: 065
  22. HYDROXYZINE [Concomitant]
  23. MARINOL [Concomitant]
  24. PEPCID [Concomitant]
  25. ZOFRAN [Concomitant]
  26. DEXAMETHASONE [Concomitant]
  27. COMPAZINE [Concomitant]
  28. POTASSIUM CHLORIDE [Concomitant]
  29. DESYREL [Concomitant]
  30. COLACE [Concomitant]

REACTIONS (18)
  - ALVEOLITIS ALLERGIC [None]
  - DECREASED APPETITE [None]
  - DEHYDRATION [None]
  - DIARRHOEA [None]
  - ENCEPHALOPATHY [None]
  - GASTRIC ULCER [None]
  - GASTROINTESTINAL DISORDER [None]
  - HEPATOTOXICITY [None]
  - HYPERSENSITIVITY [None]
  - IMMUNE RECONSTITUTION SYNDROME [None]
  - OESOPHAGEAL CANDIDIASIS [None]
  - PANCREATITIS [None]
  - PANCYTOPENIA [None]
  - PNEUMONIA [None]
  - RENAL FAILURE ACUTE [None]
  - THROMBOCYTOPENIA [None]
  - TUBULOINTERSTITIAL NEPHRITIS [None]
  - WEIGHT DECREASED [None]
